FAERS Safety Report 19420409 (Version 1)
Quarter: 2021Q2

REPORT INFORMATION
  Report Type: Spontaneous
  Country: CA (occurrence: CA)
  Receive Date: 20210616
  Receipt Date: 20210616
  Transmission Date: 20210717
  Serious: Yes (Other)
  Sender: FDA-Public Use
  Company Number: CA-JNJFOC-20210620855

PATIENT
  Age: 34 Year
  Sex: Male
  Weight: 68 kg

DRUGS (2)
  1. INFLIXIMAB, RECOMBINANT [Suspect]
     Active Substance: INFLIXIMAB
     Indication: PSORIATIC ARTHROPATHY
     Route: 042
  2. LEFLUNOMIDE. [Concomitant]
     Active Substance: LEFLUNOMIDE
     Route: 065

REACTIONS (10)
  - Blood triglycerides increased [Unknown]
  - Haemoglobin decreased [Unknown]
  - Blood cholesterol increased [Unknown]
  - Off label use [Unknown]
  - Swelling face [Unknown]
  - Mean cell haemoglobin decreased [Unknown]
  - Psoriatic arthropathy [Unknown]
  - Red blood cell count increased [Unknown]
  - Ear discomfort [Unknown]
  - Condition aggravated [Unknown]
